FAERS Safety Report 12410033 (Version 1)
Quarter: 2016Q2

REPORT INFORMATION
  Report Type: Report from Study
  Country: PT (occurrence: PT)
  Receive Date: 20160527
  Receipt Date: 20160527
  Transmission Date: 20160815
  Serious: Yes (Other)
  Sender: FDA-Public Use
  Company Number: PT-AMGEN-PRTNI2016066226

PATIENT
  Age: 69 Year
  Sex: Female

DRUGS (1)
  1. CARFILZOMIB [Suspect]
     Active Substance: CARFILZOMIB
     Indication: PRODUCT USED FOR UNKNOWN INDICATION
     Dosage: UNK
     Route: 065

REACTIONS (2)
  - Chronic kidney disease [Unknown]
  - Pneumonia [Unknown]
